FAERS Safety Report 6684176-1 (Version None)
Quarter: 2010Q2

REPORT INFORMATION
  Report Type: 
  Country: None (occurrence: None)
  Receive Date: 20100416
  Receipt Date: 20100413
  Transmission Date: 20101027
  Serious: Yes (Death, Hospitalization, Other)
  Sender: FDA-Public Use
  Company Number: PHHY2010MX04027

PATIENT
  Sex: Male

DRUGS (1)
  1. DIOVAN [Suspect]
     Indication: HYPERTENSION
     Dosage: 1 TABLET (80 MG) PER DAY
     Route: 048
     Dates: start: 20091101

REACTIONS (5)
  - ARRHYTHMIA [None]
  - BLISTER [None]
  - KIDNEY INFECTION [None]
  - LUNG INFECTION [None]
  - SEPSIS [None]
